FAERS Safety Report 5027919-5 (Version None)
Quarter: 2006Q2

REPORT INFORMATION
  Report Type: 
  Country: None (occurrence: None)
  Receive Date: 20060612
  Receipt Date: 20060608
  Transmission Date: 20061013
  Serious: Yes (Other)
  Sender: FDA-Public Use
  Company Number: 200610488BNE

PATIENT
  Age: 24 Month
  Sex: Male

DRUGS (1)
  1. CIPROFLOXACIN [Suspect]
     Indication: PSEUDOMONAS INFECTION
     Dosage: 300 MG, TOTAL DAILY, ORAL
     Route: 048
     Dates: start: 20060404, end: 20060425

REACTIONS (3)
  - ALOPECIA [None]
  - CONDITION AGGRAVATED [None]
  - HYPOTRICHOSIS [None]
